FAERS Safety Report 4312714-2 (Version None)
Quarter: 2004Q1

REPORT INFORMATION
  Report Type: 
  Country: None (occurrence: None)
  Receive Date: 20040302
  Receipt Date: 20031128
  Transmission Date: 20041129
  Serious: No
  Sender: FDA-Public Use
  Company Number: 701364

PATIENT
  Age: 47 Year
  Sex: Female
  Weight: 83.9154 kg

DRUGS (1)
  1. AMEVIVE [Suspect]
     Indication: PSORIASIS
     Dosage: 15 MG QW IM
     Route: 030
     Dates: start: 20030908

REACTIONS (3)
  - MENSTRUATION IRREGULAR [None]
  - PSORIASIS [None]
  - PYREXIA [None]
